FAERS Safety Report 5159077-0 (Version None)
Quarter: 2006Q4

REPORT INFORMATION
  Report Type: 
  Country: None (occurrence: None)
  Receive Date: 20061128
  Receipt Date: 20061026
  Transmission Date: 20070319
  Serious: Yes (Death, Hospitalization)
  Sender: FDA-Public Use
  Company Number: FR-BOEHRINGER INGELHEIM GMBH, GERMANY-2006-FF-01181FF

PATIENT
  Sex: Male

DRUGS (4)
  1. APTIVUS [Suspect]
     Indication: HIV INFECTION
     Dosage: 500MG/200MG TWICE DAILY
     Route: 048
  2. PROLEUKIN [Concomitant]
  3. VIREAD [Concomitant]
     Indication: HIV INFECTION
  4. EPIVIR [Concomitant]
     Indication: HIV INFECTION

REACTIONS (3)
  - CEREBRAL HAEMATOMA [None]
  - FALL [None]
  - HEADACHE [None]
